FAERS Safety Report 6102980-5 (Version None)
Quarter: 2009Q1

REPORT INFORMATION
  Report Type: 
  Country: None (occurrence: None)
  Receive Date: 20090305
  Receipt Date: 20090223
  Transmission Date: 20090719
  Serious: Yes (Other)
  Sender: FDA-Public Use
  Company Number: PHHY2008TW32890

PATIENT
  Age: 60 Year
  Sex: Female

DRUGS (2)
  1. ACLASTA [Suspect]
     Dosage: UNK
     Dates: start: 20081115
  2. CALCIUM-SANDOZ FORTE (NCH) [Suspect]
     Dosage: 500 MG
     Route: 048

REACTIONS (8)
  - ABDOMINAL DISCOMFORT [None]
  - CHEST DISCOMFORT [None]
  - CONDITION AGGRAVATED [None]
  - DIARRHOEA [None]
  - DYSPNOEA [None]
  - MUSCLE SPASMS [None]
  - MUSCULAR WEAKNESS [None]
  - URINE OUTPUT DECREASED [None]
